FAERS Safety Report 24025902 (Version 1)
Quarter: 2024Q2

REPORT INFORMATION
  Report Type: Spontaneous
  Country: US (occurrence: US)
  Receive Date: 20240628
  Receipt Date: 20240628
  Transmission Date: 20240715
  Serious: No
  Sender: FDA-Public Use
  Company Number: US-AUROBINDO-AUR-APL-2023-076544

PATIENT
  Sex: Female

DRUGS (1)
  1. AZELASTINE HYDROCHLORIDE [Suspect]
     Active Substance: AZELASTINE HYDROCHLORIDE
     Indication: Nasal congestion
     Dosage: UNK (ABOUT 04 MONTHS AGO)
     Route: 065

REACTIONS (3)
  - Confusional state [Recovering/Resolving]
  - Alopecia [Recovering/Resolving]
  - Loss of personal independence in daily activities [Recovering/Resolving]
